FAERS Safety Report 13828622 (Version 1)
Quarter: 2017Q3

REPORT INFORMATION
  Report Type: Spontaneous
  Country: IT (occurrence: IT)
  Receive Date: 20170803
  Receipt Date: 20170803
  Transmission Date: 20171127
  Serious: Yes (Life-Threatening, Other)
  Sender: FDA-Public Use
  Company Number: IT-BAUSCH-BL-2017-022868

PATIENT
  Age: 48 Year
  Sex: Male

DRUGS (8)
  1. GLYCERYL TRINITRATE [Suspect]
     Active Substance: NITROGLYCERIN
     Indication: HYPERTENSION
     Dosage: 1 MINUTES
     Route: 065
  2. LABETALOL [Suspect]
     Active Substance: LABETALOL\LABETALOL HYDROCHLORIDE
     Indication: HYPERTENSION
     Route: 042
  3. FENOLDOPAM [Suspect]
     Active Substance: FENOLDOPAM
     Dosage: 1 MINUTES
     Route: 042
  4. LABETALOL [Suspect]
     Active Substance: LABETALOL\LABETALOL HYDROCHLORIDE
     Route: 042
  5. FENOLDOPAM [Suspect]
     Active Substance: FENOLDOPAM
     Indication: HYPERTENSION
     Dosage: 1 MINUTES
     Route: 042
  6. ENALAPRIL [Suspect]
     Active Substance: ENALAPRIL
     Indication: HYPERTENSION
     Route: 048
  7. AMLODIPINE [Suspect]
     Active Substance: AMLODIPINE BESYLATE
     Indication: HYPERTENSION
     Route: 048
  8. MORPHINE [Concomitant]
     Active Substance: MORPHINE
     Indication: PAIN

REACTIONS (1)
  - Drug ineffective [Unknown]
